FAERS Safety Report 6688251-7 (Version None)
Quarter: 2010Q2

REPORT INFORMATION
  Report Type: 
  Country: None (occurrence: None)
  Receive Date: 20100409
  Receipt Date: 20100401
  Transmission Date: 20101027
  Serious: Yes (Other)
  Sender: FDA-Public Use
  Company Number: 2010SP015833

PATIENT
  Age: 29 Year
  Sex: Female
  Weight: 60 kg

DRUGS (1)
  1. IMPLANON [Suspect]
     Indication: DRUG USE FOR UNKNOWN INDICATION
     Dosage: 1 DF; SC
     Route: 058
     Dates: start: 20060117, end: 20090201

REACTIONS (3)
  - DRUG EXPOSURE BEFORE PREGNANCY [None]
  - PERIPHLEBITIS [None]
  - PREGNANCY [None]
